FAERS Safety Report 5051035-X (Version None)
Quarter: 2006Q3

REPORT INFORMATION
  Report Type: 
  Country: None (occurrence: None)
  Receive Date: 20060714
  Receipt Date: 20060710
  Transmission Date: 20061208
  Serious: Yes (Other)
  Sender: FDA-Public Use
  Company Number: PHEH2006US08790

PATIENT
  Age: 83 Year
  Sex: Female

DRUGS (6)
  1. ZELNORM [Suspect]
     Dosage: 6 MG, BID
     Route: 048
     Dates: start: 20060701
  2. LOVENOX [Concomitant]
  3. ESTROGEN NOS [Concomitant]
  4. FLORINEF [Concomitant]
  5. SYNTHROID [Concomitant]
  6. PROTONIX [Concomitant]

REACTIONS (4)
  - BLOOD CREATININE INCREASED [None]
  - BLOOD UREA INCREASED [None]
  - CREATININE RENAL CLEARANCE INCREASED [None]
  - RENAL IMPAIRMENT [None]
